FAERS Safety Report 25041044 (Version 1)
Quarter: 2025Q1

REPORT INFORMATION
  Report Type: Report from Study
  Country: CA (occurrence: CA)
  Receive Date: 20250305
  Receipt Date: 20250305
  Transmission Date: 20250409
  Serious: Yes (Hospitalization)
  Sender: LEO PHARM
  Company Number: CA-LEO Pharma-377974

PATIENT
  Age: 75 Year
  Sex: Male

DRUGS (2)
  1. ADBRY [Suspect]
     Active Substance: TRALOKINUMAB-LDRM
     Indication: Dermatitis atopic
     Route: 058
     Dates: start: 20241024, end: 20241024
  2. ADBRY [Suspect]
     Active Substance: TRALOKINUMAB-LDRM
     Indication: Dermatitis atopic
     Dosage: MAINTENANCE DOSE; FORMAT: 150 MG/ML; TREATMENT TEMPORARILY SUSPENDED AS PER PATIENT (SINCE END OF JA
     Route: 058
     Dates: end: 202501

REACTIONS (2)
  - Asthenia [Recovering/Resolving]
  - Rash macular [Recovered/Resolved]
